FAERS Safety Report 10865404 (Version 1)
Quarter: 2015Q1

REPORT INFORMATION
  Report Type: Report from Study
  Country: US (occurrence: US)
  Receive Date: 20150224
  Receipt Date: 20150224
  Transmission Date: 20150721
  Serious: No
  Sender: FDA-Public Use
  Company Number: US-MYLANLABS-2014M1003591

PATIENT
  Sex: Female
  Weight: 108 kg

DRUGS (1)
  1. AMNESTEEM [Suspect]
     Active Substance: ISOTRETINOIN
     Indication: ACNE
     Dosage: 40 MG, QD
     Route: 048
     Dates: start: 20140615, end: 20140827

REACTIONS (5)
  - Arthralgia [Not Recovered/Not Resolved]
  - Lip dry [Recovered/Resolved]
  - Headache [Not Recovered/Not Resolved]
  - Dry skin [Recovered/Resolved]
  - Musculoskeletal stiffness [Not Recovered/Not Resolved]

NARRATIVE: CASE EVENT DATE: 2014
